FAERS Safety Report 10258018 (Version 1)
Quarter: 2014Q2

REPORT INFORMATION
  Report Type: Spontaneous
  Country: US (occurrence: US)
  Receive Date: 20140625
  Receipt Date: 20140625
  Transmission Date: 20141212
  Serious: No
  Sender: FDA-Public Use
  Company Number: US-PFIZER INC-2014170725

PATIENT
  Age: 61 Year
  Sex: Female

DRUGS (7)
  1. NEURONTIN [Suspect]
     Dosage: UNK
  2. DICLOFENAC EPOLAMINE [Suspect]
     Dosage: UNK
  3. BENZONATATE [Suspect]
     Dosage: UNK
  4. PAXIL [Suspect]
     Dosage: UNK
  5. LORAZEPAM [Suspect]
     Dosage: UNK
  6. ERYTHROMYCIN [Suspect]
     Dosage: UNK
  7. LORTAB [Suspect]
     Dosage: UNK

REACTIONS (1)
  - Drug hypersensitivity [Unknown]
